FAERS Safety Report 9951565 (Version 1)
Quarter: 2014Q1

REPORT INFORMATION
  Report Type: Report from Study
  Country: US (occurrence: US)
  Receive Date: 20140304
  Receipt Date: 20140304
  Transmission Date: 20141002
  Serious: No
  Sender: FDA-Public Use
  Company Number: US-ABBVIE-13P-163-1070687-00

PATIENT
  Sex: Female
  Weight: 74.46 kg

DRUGS (4)
  1. HUMIRA [Suspect]
     Indication: PSORIASIS
     Route: 058
     Dates: start: 201301, end: 201301
  2. HUMIRA [Suspect]
     Route: 058
     Dates: start: 201302
  3. UNKNOWN MEDICATION [Concomitant]
     Indication: HYPERTENSION
  4. UNKNOWN MEDICATION [Concomitant]
     Indication: BLOOD CHOLESTEROL

REACTIONS (3)
  - Pruritus generalised [Unknown]
  - Psoriasis [Unknown]
  - Drug ineffective [Unknown]
